FAERS Safety Report 6335740-0 (Version None)
Quarter: 2009Q3

REPORT INFORMATION
  Report Type: 
  Country: None (occurrence: None)
  Receive Date: 20090831
  Receipt Date: 20090821
  Transmission Date: 20100115
  Serious: Yes (Disabling, Other)
  Sender: FDA-Public Use
  Company Number: US-ELI_LILLY_AND_COMPANY-US200907007075

PATIENT
  Sex: Male

DRUGS (9)
  1. CIALIS [Suspect]
     Indication: ERECTILE DYSFUNCTION
     Dosage: UNK, UNKNOWN
     Route: 065
     Dates: end: 20050418
  2. VIAGRA [Concomitant]
     Indication: ERECTILE DYSFUNCTION
     Dosage: UNK, UNKNOWN
     Route: 065
  3. VITAMINS NOS [Concomitant]
     Dosage: UNK, UNKNOWN
     Route: 065
  4. ZANTAC [Concomitant]
     Dosage: UNK, AS NEEDED
     Route: 065
  5. BC POWDER [Concomitant]
     Dosage: UNK, AS NEEDED
     Route: 065
  6. TYLENOL (CAPLET) [Concomitant]
     Dosage: UNK, AS NEEDED
     Route: 065
  7. ASPIRIN [Concomitant]
     Dosage: 81 MG, DAILY (1/D)
     Route: 065
  8. HYDROCODONE [Concomitant]
     Dosage: UNK, UNKNOWN
     Route: 065
  9. ETODOLAC [Concomitant]
     Dosage: 500 MG, 2/D
     Route: 065

REACTIONS (12)
  - ADVERSE EVENT [None]
  - DYSPEPSIA [None]
  - DYSPNOEA [None]
  - HEADACHE [None]
  - NIGHT SWEATS [None]
  - OEDEMA PERIPHERAL [None]
  - OPTIC ISCHAEMIC NEUROPATHY [None]
  - PAPILLOEDEMA [None]
  - SINUS CONGESTION [None]
  - VISION BLURRED [None]
  - VISUAL IMPAIRMENT [None]
  - VITREOUS DETACHMENT [None]
